FAERS Safety Report 24878889 (Version 1)
Quarter: 2025Q1

REPORT INFORMATION
  Report Type: Spontaneous
  Country: BG (occurrence: BG)
  Receive Date: 20250123
  Receipt Date: 20250123
  Transmission Date: 20250408
  Serious: Yes (Hospitalization, Other)
  Sender: OTSUKA
  Company Number: BG-STADA-01335392

PATIENT
  Age: 20 Year
  Sex: Female

DRUGS (9)
  1. ARIPIPRAZOLE [Suspect]
     Active Substance: ARIPIPRAZOLE
     Indication: Psychotic disorder
     Dosage: 30 MG, QD
     Route: 065
     Dates: start: 202303
  2. RISPERIDONE [Suspect]
     Active Substance: RISPERIDONE
     Indication: Psychotic disorder
     Dosage: 3 MG, QD
     Route: 065
     Dates: start: 2021
  3. QUETIAPINE [Suspect]
     Active Substance: QUETIAPINE
     Indication: Psychotic disorder
     Dosage: 50 MG, QD
     Route: 065
     Dates: start: 2021
  4. QUETIAPINE [Suspect]
     Active Substance: QUETIAPINE
     Dosage: 300 MG, QD
     Route: 065
  5. EVEROLIMUS [Suspect]
     Active Substance: EVEROLIMUS
     Indication: Tuberous sclerosis complex
     Dosage: 5 MG, QD
     Route: 065
     Dates: start: 2018
  6. VALPROIC ACID [Concomitant]
     Active Substance: VALPROIC ACID
     Indication: Tuberous sclerosis complex
     Dosage: 600 MG, QD
     Route: 065
     Dates: start: 2005
  7. VALPROIC ACID [Concomitant]
     Active Substance: VALPROIC ACID
     Indication: Seizure
  8. LEVETIRACETAM [Concomitant]
     Active Substance: LEVETIRACETAM
     Indication: Tuberous sclerosis complex
     Dosage: UNK, QD, UP TO 2000 MG
     Route: 065
     Dates: start: 2005
  9. LEVETIRACETAM [Concomitant]
     Active Substance: LEVETIRACETAM
     Indication: Seizure

REACTIONS (5)
  - Psychotic disorder [Recovering/Resolving]
  - Amenorrhoea [Unknown]
  - Electrocardiogram QT prolonged [Recovering/Resolving]
  - Treatment noncompliance [Unknown]
  - Product use in unapproved indication [Unknown]

NARRATIVE: CASE EVENT DATE: 20230301
